FAERS Safety Report 22129432 (Version 1)
Quarter: 2023Q1

REPORT INFORMATION
  Report Type: Spontaneous
  Country: GB (occurrence: GB)
  Receive Date: 20230323
  Receipt Date: 20230323
  Transmission Date: 20230418
  Serious: Yes (Other)
  Sender: FDA-Public Use
  Company Number: None

PATIENT
  Age: 74 Year
  Sex: Male
  Weight: 77 kg

DRUGS (11)
  1. METOPROLOL [Suspect]
     Active Substance: METOPROLOL
     Indication: Product used for unknown indication
     Dates: start: 20230307
  2. ASPIRIN [Concomitant]
     Active Substance: ASPIRIN
     Dates: start: 20220505
  3. ATENOLOL [Concomitant]
     Active Substance: ATENOLOL
     Dates: start: 20230310
  4. CLOPIDOGREL [Concomitant]
     Active Substance: CLOPIDOGREL BISULFATE
     Dosage: IN THE MORNING UNTIL FEBRUARY 2024
     Dates: start: 20230207
  5. LANSOPRAZOLE [Concomitant]
     Active Substance: LANSOPRAZOLE
     Dosage: WHILST TAKING DAPT
     Dates: start: 20230207
  6. MOMETASONE [Concomitant]
     Active Substance: MOMETASONE
     Route: 045
     Dates: start: 20230309
  7. NEBIVOLOL [Concomitant]
     Active Substance: NEBIVOLOL
     Dates: start: 20221217, end: 20221218
  8. OMEPRAZOLE [Concomitant]
     Active Substance: OMEPRAZOLE
     Dates: start: 20210414, end: 20230109
  9. PRAVASTATIN [Concomitant]
     Active Substance: PRAVASTATIN
     Dosage: WITH MAIN MEAL
     Dates: start: 20230207
  10. RAMIPRIL [Concomitant]
     Active Substance: RAMIPRIL
     Dates: start: 20230207
  11. ACETAMINOPHEN\CODEINE PHOSPHATE [Concomitant]
     Active Substance: ACETAMINOPHEN\CODEINE PHOSPHATE
     Dosage: AT BEDTIME INSTEAD OF PARACETAMOL
     Dates: start: 20230214, end: 20230218

REACTIONS (2)
  - Hallucination, visual [Unknown]
  - Sleep disorder [Unknown]

NARRATIVE: CASE EVENT DATE: 20230310
